FAERS Safety Report 15481401 (Version 1)
Quarter: 2018Q4

REPORT INFORMATION
  Report Type: Spontaneous
  Country: TR (occurrence: TR)
  Receive Date: 20181010
  Receipt Date: 20181010
  Transmission Date: 20190205
  Serious: Yes (Life-Threatening, Hospitalization, Other)
  Sender: FDA-Public Use
  Company Number: TR-LUPIN PHARMACEUTICALS INC.-2018-06874

PATIENT
  Age: 68 Year
  Sex: Female

DRUGS (3)
  1. TENOXICAM [Suspect]
     Active Substance: TENOXICAM
     Indication: BACK PAIN
     Dosage: 20 MG, UNK (LYOPHILISATE)
     Route: 030
  2. ETODOLAC. [Suspect]
     Active Substance: ETODOLAC
     Indication: BACK PAIN
     Dosage: 400 MG, UNK
     Route: 048
  3. MELOXICAM TABLETS [Suspect]
     Active Substance: MELOXICAM
     Indication: BACK PAIN
     Dosage: 15 MG, UNK
     Route: 048

REACTIONS (3)
  - Acute respiratory distress syndrome [Unknown]
  - Non-cardiogenic pulmonary oedema [Unknown]
  - Anaphylactic shock [Unknown]
